FAERS Safety Report 4462707-X (Version None)
Quarter: 2004Q3

REPORT INFORMATION
  Report Type: 
  Country: None (occurrence: None)
  Receive Date: 20040927
  Receipt Date: 20040913
  Transmission Date: 20050211
  Serious: Yes (Other)
  Sender: FDA-Public Use
  Company Number: 2003125461

PATIENT
  Age: 80 Year

DRUGS (7)
  1. ZOLOFT [Suspect]
     Indication: DEPRESSION
  2. DONEPEZIL HCL [Suspect]
     Indication: ILL-DEFINED DISORDER
  3. DIGOXIN [Concomitant]
  4. OLMESARTAN MEDOXOMIL (OLMESARTAN MEDOXOMIL) [Concomitant]
  5. WARFARIN (WARFARIN) [Concomitant]
  6. LANSOPRAZOLE [Concomitant]
  7. LORAZEPAM [Concomitant]

REACTIONS (2)
  - ANOREXIA [None]
  - DEPRESSION [None]
